FAERS Safety Report 14664013 (Version 2)
Quarter: 2018Q2

REPORT INFORMATION
  Report Type: Spontaneous
  Country: JP (occurrence: JP)
  Receive Date: 20180321
  Receipt Date: 20180427
  Transmission Date: 20180711
  Serious: Yes (Hospitalization, Other)
  Sender: FDA-Public Use
  Company Number: JP-JNJFOC-20180320324

PATIENT
  Age: 74 Year
  Sex: Female

DRUGS (18)
  1. LYRICA [Suspect]
     Active Substance: PREGABALIN
     Indication: PAIN
     Dosage: 1 TABLET IN THE MORNING AND 2 TABLETS IN THE EVENING: 25 MG IN THE MORNING,50 MG IN THE EVENING
     Route: 048
     Dates: start: 20160902
  2. LASIX [Concomitant]
     Active Substance: FUROSEMIDE
     Dosage: AFTER BREAKFAST
     Route: 048
  3. TAKEPRON [Concomitant]
     Active Substance: LANSOPRAZOLE
     Dosage: AFTER BREAKFAST
     Route: 048
     Dates: start: 20160902
  4. MECOBALAMIN [Concomitant]
     Active Substance: METHYLCOBALAMIN
     Dosage: AFTER BREAKFAST, LUNCH AND DINNER
     Route: 048
  5. BOFUTSUSHOSAN [Concomitant]
     Active Substance: HERBALS
     Indication: WEIGHT INCREASED
     Dosage: AFTER BREAKFAST LUNCH AND DINNER
     Route: 048
  6. FERROMIA [Concomitant]
     Active Substance: SODIUM FERROUS CITRATE
     Indication: ANAEMIA
     Dosage: AFTER BREAKFAST+#65292;AFTER DINNER
     Route: 048
  7. ARTIST [Concomitant]
     Active Substance: CARVEDILOL
     Dosage: AFTER BREAKFAST
     Route: 048
  8. TRYPTANOL [Concomitant]
     Active Substance: AMITRIPTYLINE
     Dosage: AFTER BREAKFAST AND DINNER
     Route: 048
     Dates: start: 20160902
  9. WARFARIN [Concomitant]
     Active Substance: WARFARIN
     Dosage: AFTER DINNER
     Route: 048
  10. DIPHENHYDRAMINE SALICYLATE W/DIPROPHYLLINE [Concomitant]
     Route: 065
     Dates: start: 20160902
  11. MYSLEE [Concomitant]
     Active Substance: ZOLPIDEM TARTRATE
     Route: 048
  12. TRAMCET [Suspect]
     Active Substance: ACETAMINOPHEN\TRAMADOL
     Indication: PAIN
     Route: 048
     Dates: start: 20160902, end: 20160911
  13. WARFARIN [Concomitant]
     Active Substance: WARFARIN
     Dosage: AFTER DINNER
     Route: 048
  14. ZYLORIC [Concomitant]
     Active Substance: ALLOPURINOL
     Dosage: AFTER BREAKFAST
     Route: 048
  15. TRAZENTA [Concomitant]
     Active Substance: LINAGLIPTIN
     Dosage: AFTER BREAKFAST
     Route: 048
  16. MAGMITT [Concomitant]
     Active Substance: MAGNESIUM OXIDE
     Dosage: AFTER BREAKFAST
     Route: 048
  17. ADALAT [Concomitant]
     Active Substance: NIFEDIPINE
     Dosage: AFTER BREAKFAST
     Route: 048
  18. MICARDIS [Concomitant]
     Active Substance: TELMISARTAN
     Dosage: AFTER BREAKFAST
     Route: 048

REACTIONS (4)
  - Gait disturbance [Not Recovered/Not Resolved]
  - Loss of consciousness [Recovered/Resolved]
  - Anaemia [Unknown]
  - Blood pressure decreased [Unknown]

NARRATIVE: CASE EVENT DATE: 20160902
